FAERS Safety Report 6663898-2 (Version None)
Quarter: 2010Q2

REPORT INFORMATION
  Report Type: 
  Country: None (occurrence: None)
  Receive Date: 20100401
  Receipt Date: 20100325
  Transmission Date: 20101027
  Serious: Yes (Death, Life-Threatening, Hospitalization, Disabling)
  Sender: FDA-Public Use
  Company Number: US-MERCK-1003USA02053

PATIENT
  Age: 15 Year
  Sex: Male

DRUGS (8)
  1. SINGULAIR [Suspect]
     Indication: RHINITIS ALLERGIC
     Route: 048
     Dates: start: 20091107, end: 20091201
  2. SINGULAIR [Suspect]
     Route: 048
     Dates: start: 20100223, end: 20100226
  3. SINGULAIR [Suspect]
     Indication: ASTHMA
     Route: 048
     Dates: start: 20091107, end: 20091201
  4. SINGULAIR [Suspect]
     Route: 048
     Dates: start: 20100223, end: 20100226
  5. CLARITIN [Concomitant]
     Route: 065
  6. ASTELIN [Concomitant]
     Route: 065
  7. SINGULAIR [Suspect]
     Route: 048
     Dates: start: 20000101
  8. SINGULAIR [Suspect]
     Route: 048
     Dates: start: 20000101

REACTIONS (4)
  - ABNORMAL DREAMS [None]
  - APPENDIX DISORDER [None]
  - COMPLETED SUICIDE [None]
  - OROPHARYNGEAL PAIN [None]
